FAERS Safety Report 8914821 (Version 2)
Quarter: 2012Q4

REPORT INFORMATION
  Report Type: 
  Country: JP (occurrence: JP)
  Receive Date: 20121119
  Receipt Date: 20121122
  Transmission Date: 20130627
  Serious: Yes (Other)
  Sender: FDA-Public Use
  Company Number: JP-BRISTOL-MYERS SQUIBB COMPANY-17130113

PATIENT
  Age: 69 Year
  Sex: Female

DRUGS (1)
  1. HYDREA [Suspect]

REACTIONS (2)
  - Osteonecrosis [Unknown]
  - Oedema peripheral [Recovering/Resolving]
